FAERS Safety Report 14592579 (Version 1)
Quarter: 2018Q1

REPORT INFORMATION
  Report Type: Spontaneous
  Country: US (occurrence: US)
  Receive Date: 20180302
  Receipt Date: 20180302
  Transmission Date: 20180509
  Serious: Yes (Hospitalization, Other)
  Sender: FDA-Public Use
  Company Number: US-GLAXOSMITHKLINE-US2018034494

PATIENT
  Age: 67 Year
  Sex: Female

DRUGS (2)
  1. ADVAIR DISKUS [Suspect]
     Active Substance: FLUTICASONE PROPIONATE\SALMETEROL XINAFOATE
     Indication: CHRONIC OBSTRUCTIVE PULMONARY DISEASE
     Dosage: 1 PUFF(S), BID
     Route: 055
  2. BREO ELLIPTA [Suspect]
     Active Substance: FLUTICASONE FUROATE\VILANTEROL TRIFENATATE
     Indication: CHRONIC OBSTRUCTIVE PULMONARY DISEASE
     Dosage: 1 PUFF(S), BID
     Route: 055

REACTIONS (11)
  - Underdose [Unknown]
  - Anxiety [Unknown]
  - Asthenia [Not Recovered/Not Resolved]
  - Urinary tract infection [Unknown]
  - Blood sodium decreased [Unknown]
  - Blood glucose decreased [Recovered/Resolved]
  - Oro-pharyngeal aspergillosis [Not Recovered/Not Resolved]
  - Off label use [Unknown]
  - Overdose [Unknown]
  - Hypertension [Unknown]
  - Confusional state [Not Recovered/Not Resolved]

NARRATIVE: CASE EVENT DATE: 20171127
